FAERS Safety Report 7636779-5 (Version None)
Quarter: 2011Q3

REPORT INFORMATION
  Report Type: 
  Country: None (occurrence: None)
  Receive Date: 20110726
  Receipt Date: 20110720
  Transmission Date: 20111222
  Serious: Yes (Other)
  Sender: FDA-Public Use
  Company Number: US-BAYER-2011-059874

PATIENT
  Sex: Female

DRUGS (1)
  1. CIPROFLOXACIN HCL [Suspect]
     Dosage: UNK
     Route: 048
     Dates: start: 20110501, end: 20110501

REACTIONS (4)
  - LIGAMENT RUPTURE [None]
  - ARTHRITIS [None]
  - PAIN [None]
  - TENDON DISORDER [None]
